FAERS Safety Report 4817280-0 (Version None)
Quarter: 2005Q4

REPORT INFORMATION
  Report Type: 
  Country: None (occurrence: None)
  Receive Date: 20051018
  Receipt Date: 20050405
  Transmission Date: 20060501
  Serious: Yes (Life-Threatening, Hospitalization)
  Sender: FDA-Public Use
  Company Number: PHEH2005US03828

PATIENT
  Age: 70 Year
  Sex: Male

DRUGS (11)
  1. ZOMETA [Suspect]
     Indication: METASTASES TO BONE
  2. AVASTIN [Suspect]
     Indication: COLON CANCER METASTATIC
     Dosage: 300 MG, QW2
     Dates: start: 20041209, end: 20050317
  3. COUMADIN [Concomitant]
  4. ALEVE [Concomitant]
  5. OXYCONTIN [Concomitant]
  6. VITAMIN B COMPLEX (CALCIUM PANTOTHENATE, NICOTINAMIDE, PYRIDOXINE HYDR [Concomitant]
  7. CALCIUM WITH VITAMIN D (CALCIUM PHOSPHATE, CALCIUM SODIUM LACTATE, ERG [Concomitant]
  8. SENOKOT/USA/(SENNA, SENNA ALEXANDRIA) [Concomitant]
  9. IMODIUM [Concomitant]
  10. FLUOROURACIL [Concomitant]
  11. LEUCOVORIN CALCIUM [Concomitant]

REACTIONS (3)
  - ANURIA [None]
  - BLOOD CREATININE INCREASED [None]
  - RENAL FAILURE ACUTE [None]
